FAERS Safety Report 13891723 (Version 1)
Quarter: 2017Q3

REPORT INFORMATION
  Report Type: Spontaneous
  Country: BR (occurrence: BR)
  Receive Date: 20170822
  Receipt Date: 20170822
  Transmission Date: 20171127
  Serious: Yes (Other)
  Sender: FDA-Public Use
  Company Number: PHHY2017BR122566

PATIENT
  Sex: Female
  Weight: 65 kg

DRUGS (1)
  1. FORASEQ [Suspect]
     Active Substance: BUDESONIDE\FORMOTEROL FUMARATE
     Indication: BRONCHITIS
     Dosage: (60 PLUS 60 CAPSULES)
     Route: 055

REACTIONS (1)
  - Breast cancer [Unknown]
